FAERS Safety Report 14305959 (Version 2)
Quarter: 2017Q4

REPORT INFORMATION
  Report Type: Spontaneous
  Country: US (occurrence: US)
  Receive Date: 20171219
  Receipt Date: 20171222
  Transmission Date: 20180321
  Serious: No
  Sender: FDA-Public Use
  Company Number: US-PFIZER INC-2017534031

PATIENT
  Age: 69 Year
  Sex: Female

DRUGS (1)
  1. ATROPINE SULFATE/DIPHENOXYLATE HYDROCHLORIDE [Suspect]
     Active Substance: ATROPINE SULFATE\DIPHENOXYLATE HYDROCHLORIDE
     Dosage: 2 DF, AS NEEDED (FOUR TIMES A DAY) (ATROPINE SULFATE-0.025MG, DIPHENOXYLATE HCL-2.25MG)
     Dates: start: 201708

REACTIONS (5)
  - Drug effect variable [Unknown]
  - Abdominal pain [Unknown]
  - Intentional product use issue [Unknown]
  - Product use issue [Unknown]
  - Constipation [Unknown]

NARRATIVE: CASE EVENT DATE: 201709
